FAERS Safety Report 7167151-2 (Version None)
Quarter: 2010Q4

REPORT INFORMATION
  Report Type: 
  Country: None (occurrence: None)
  Receive Date: 20101213
  Receipt Date: 20101213
  Transmission Date: 20110411
  Serious: Yes (Other)
  Sender: FDA-Public Use
  Company Number: None

PATIENT
  Age: 7 Year
  Sex: Female
  Weight: 24.0406 kg

DRUGS (1)
  1. MOTRIN [Suspect]
     Indication: PAIN
     Dosage: 2 TSP 1 PO
     Route: 048
     Dates: start: 20101204, end: 20101204

REACTIONS (3)
  - ABDOMINAL DISCOMFORT [None]
  - DIARRHOEA [None]
  - VOMITING [None]
